FAERS Safety Report 17444269 (Version 1)
Quarter: 2020Q1

REPORT INFORMATION
  Report Type: Spontaneous
  Country: US (occurrence: US)
  Receive Date: 20200221
  Receipt Date: 20200221
  Transmission Date: 20200409
  Serious: No
  Sender: FDA-Public Use
  Company Number: None

PATIENT
  Age: 22 Year
  Sex: Female
  Weight: 63.9 kg

DRUGS (2)
  1. PAINBLOC24 [Suspect]
     Active Substance: CAPSAICIN
     Indication: BACK PAIN
     Route: 061
     Dates: start: 20200220, end: 20200220
  2. ENSYCE BIRTH CONTROL PILLS [Concomitant]

REACTIONS (2)
  - Pruritus [None]
  - Crying [None]

NARRATIVE: CASE EVENT DATE: 20200221
